FAERS Safety Report 4483880-3 (Version None)
Quarter: 2004Q4

REPORT INFORMATION
  Report Type: 
  Country: None (occurrence: None)
  Receive Date: 20041020
  Receipt Date: 20041004
  Transmission Date: 20050328
  Serious: Yes (Death)
  Sender: FDA-Public Use
  Company Number: US013995

PATIENT
  Age: 11 Year
  Sex: Male

DRUGS (1)
  1. ACTIQ [Suspect]

REACTIONS (1)
  - ACCIDENTAL OVERDOSE [None]
